FAERS Safety Report 24036311 (Version 1)
Quarter: 2024Q3

REPORT INFORMATION
  Report Type: Spontaneous
  Country: IN (occurrence: IN)
  Receive Date: 20240701
  Receipt Date: 20240701
  Transmission Date: 20241016
  Serious: Yes (Other)
  Sender: SANDOZ
  Company Number: IN-SANDOZ-SDZ2024IN060649

PATIENT
  Age: 21 Year
  Sex: Male

DRUGS (1)
  1. TACROLIMUS [Suspect]
     Active Substance: TACROLIMUS
     Indication: Renal transplant
     Dosage: 1 MG, BID
     Route: 048

REACTIONS (15)
  - Cholecystitis [Unknown]
  - Cholesterosis [Unknown]
  - Cholelithiasis [Unknown]
  - Blood parathyroid hormone increased [Unknown]
  - Abdominal pain [Unknown]
  - SARS-CoV-2 test positive [Unknown]
  - Muscle spasms [Unknown]
  - Muscle twitching [Unknown]
  - Abdominal pain lower [Unknown]
  - Sciatica [Unknown]
  - Cough [Unknown]
  - Arthralgia [Unknown]
  - Pain in extremity [Unknown]
  - Nasopharyngitis [Unknown]
  - Diarrhoea [Unknown]

NARRATIVE: CASE EVENT DATE: 20230323
